FAERS Safety Report 8740006 (Version 2)
Quarter: 2012Q4

REPORT INFORMATION
  Report Type: Report from Study
  Country: JP (occurrence: JP)
  Receive Date: 20120823
  Receipt Date: 20121120
  Transmission Date: 20130627
  Serious: Yes (Death, Hospitalization)
  Sender: FDA-Public Use
  Company Number: JP-009507513-1202USA02882

PATIENT
  Age: 63 Year
  Sex: Female

DRUGS (12)
  1. ZOLINZA CAPSULES 100MG [Suspect]
     Indication: MYCOSIS FUNGOIDES
     Dosage: 400 mg, qd
     Route: 048
     Dates: start: 20111110, end: 20111121
  2. ZOLINZA CAPSULES 100MG [Suspect]
     Indication: MYCOSIS FUNGOIDES
     Dosage: 300 mg, qd
     Route: 048
     Dates: start: 20111129, end: 20111201
  3. ZOLINZA CAPSULES 100MG [Suspect]
     Dosage: 300 mg, qd
     Route: 048
     Dates: start: 20111208, end: 20111226
  4. ZOLINZA CAPSULES 100MG [Suspect]
     Dosage: 300 mg, qd
     Route: 048
     Dates: start: 20120102, end: 20120114
  5. PANTETHINE [Concomitant]
     Indication: CONSTIPATION
     Dosage: 200 mg, tid
     Route: 048
  6. MAGLAX (MAGNESIUM OXIDE) [Concomitant]
     Indication: CONSTIPATION
     Dosage: 250 mg, tid
     Route: 048
  7. PARIET [Concomitant]
     Indication: PROPHYLAXIS AGAINST GASTROINTESTINAL ULCER
     Dosage: 10 mg, qd
     Route: 048
  8. LIPITOR [Concomitant]
     Indication: HYPERLIPIDAEMIA
     Dosage: 10 mg, qd
     Route: 048
  9. ALLEGRA [Concomitant]
     Indication: MYCOSIS FUNGOIDES
     Dosage: 60 mg, bid
     Route: 048
  10. DIFLUCAN [Concomitant]
     Indication: INFECTION PROPHYLAXIS
     Dosage: 100 mg, bid
     Route: 048
  11. NOVORAPID [Concomitant]
     Indication: DIABETES MELLITUS
     Dosage: UNK
     Route: 058
  12. LANTUS [Concomitant]
     Indication: DIABETES MELLITUS
     Dosage: UNK
     Route: 058

REACTIONS (12)
  - Pleural effusion [Fatal]
  - Death [Fatal]
  - Eosinophilic pneumonia acute [Recovered/Resolved]
  - Deep vein thrombosis [Recovering/Resolving]
  - Parotitis [Recovered/Resolved]
  - Nausea [Recovered/Resolved]
  - Vomiting [Recovered/Resolved]
  - Aspartate aminotransferase increased [Recovered/Resolved]
  - Alanine aminotransferase increased [Recovered/Resolved]
  - Decreased appetite [Recovered/Resolved]
  - Constipation [Not Recovered/Not Resolved]
  - Platelet count decreased [Recovering/Resolving]
